FAERS Safety Report 5238247-7 (Version None)
Quarter: 2007Q1

REPORT INFORMATION
  Report Type: 
  Country: None (occurrence: None)
  Receive Date: 20070215
  Receipt Date: 20070207
  Transmission Date: 20070707
  Serious: Yes (Death, Life-Threatening)
  Sender: FDA-Public Use
  Company Number: PT-AVENTIS-200710232EU

PATIENT
  Age: 64 Year
  Sex: Female
  Weight: 80 kg

DRUGS (3)
  1. LOVENOX [Suspect]
     Route: 042
     Dates: start: 20061226, end: 20070103
  2. OMEPRAZOLE [Concomitant]
  3. FUROSEMIDE [Concomitant]

REACTIONS (2)
  - DEATH [None]
  - RETROPERITONEAL HAEMORRHAGE [None]
